FAERS Safety Report 17414513 (Version 3)
Quarter: 2020Q1

REPORT INFORMATION
  Report Type: Spontaneous
  Country: JP (occurrence: JP)
  Receive Date: 20200213
  Receipt Date: 20200331
  Transmission Date: 20200409
  Serious: Yes (Death, Hospitalization, Other)
  Sender: FDA-Public Use
  Company Number: JP-ABBVIE-20P-087-3272138-00

PATIENT
  Age: 79 Year
  Sex: Male
  Weight: 76.5 kg

DRUGS (2)
  1. LEUPLIN [Suspect]
     Active Substance: LEUPROLIDE ACETATE
     Indication: PROSTATE CANCER
     Dosage: 3.75 MILLIGRAM, Q4WEEKS
     Route: 058
     Dates: start: 201806, end: 20191225
  2. FENTANYL. [Concomitant]
     Active Substance: FENTANYL
     Indication: CANCER PAIN
     Dosage: 6.3 MILLIGRAM
     Route: 062
     Dates: start: 201806, end: 20200125

REACTIONS (8)
  - Sepsis [Fatal]
  - Urinary tract infection [Fatal]
  - Central venous catheterisation [Unknown]
  - Prostate cancer [Fatal]
  - Condition aggravated [Fatal]
  - Dysphagia [Unknown]
  - Aspiration [Unknown]
  - Loss of personal independence in daily activities [Fatal]

NARRATIVE: CASE EVENT DATE: 2019
